FAERS Safety Report 22252199 (Version 1)
Quarter: 2023Q2

REPORT INFORMATION
  Report Type: Spontaneous
  Country: US (occurrence: US)
  Receive Date: 20230426
  Receipt Date: 20230426
  Transmission Date: 20230721
  Serious: No
  Sender: FDA-Public Use
  Company Number: US-SA-SAC20230424000311

PATIENT
  Age: 49 Year
  Sex: Female
  Weight: 81.19 kg

DRUGS (8)
  1. DUPIXENT [Suspect]
     Active Substance: DUPILUMAB
     Indication: Dermatitis atopic
     Dosage: 600 MG, 1X
     Route: 058
     Dates: start: 20230320, end: 20230320
  2. DUPIXENT [Suspect]
     Active Substance: DUPILUMAB
     Dosage: 600 MG, QOW
     Route: 058
     Dates: start: 20230403
  3. CLARITIN [Concomitant]
     Active Substance: LORATADINE
  4. TACROLIMUS [Concomitant]
     Active Substance: TACROLIMUS
  5. DOXYCYCLINE [Concomitant]
     Active Substance: DOXYCYCLINE
  6. CLOBETASOL [Concomitant]
     Active Substance: CLOBETASOL
  7. DESONIDE [Concomitant]
     Active Substance: DESONIDE
  8. CLINDAMYCIN PHOSPHATE [Concomitant]
     Active Substance: CLINDAMYCIN PHOSPHATE

REACTIONS (1)
  - Extra dose administered [Unknown]

NARRATIVE: CASE EVENT DATE: 20230403
